FAERS Safety Report 8391721-7 (Version None)
Quarter: 2012Q2

REPORT INFORMATION
  Report Type: 
  Country: None (occurrence: None)
  Receive Date: 20120529
  Receipt Date: 20120523
  Transmission Date: 20120825
  Serious: Yes (Other)
  Sender: FDA-Public Use
  Company Number: US-BAYER-2012-051849

PATIENT
  Age: 48 Year
  Sex: Female

DRUGS (1)
  1. MIRENA [Suspect]
     Indication: MENORRHAGIA
     Dosage: UNK
     Dates: start: 20120508, end: 20120521

REACTIONS (3)
  - DEVICE DISLOCATION [None]
  - VAGINAL HAEMORRHAGE [None]
  - PAIN [None]
